FAERS Safety Report 9310457 (Version 1)
Quarter: 2013Q2

REPORT INFORMATION
  Report Type: Spontaneous
  Country: US (occurrence: US)
  Receive Date: 20130527
  Receipt Date: 20130527
  Transmission Date: 20140414
  Serious: No
  Sender: FDA-Public Use
  Company Number: US-PFIZER INC-2013159171

PATIENT
  Age: 62 Year
  Sex: Female

DRUGS (2)
  1. LYRICA [Suspect]
     Dosage: 25 MG, DAILY
  2. LYRICA [Suspect]
     Dosage: ONE CAPSULE EVERY OTHER DAY

REACTIONS (2)
  - Drug intolerance [Unknown]
  - Paraesthesia [Unknown]
